FAERS Safety Report 5903977-8 (Version None)
Quarter: 2008Q3

REPORT INFORMATION
  Report Type: 
  Country: None (occurrence: None)
  Receive Date: 20080930
  Receipt Date: 20080328
  Transmission Date: 20090109
  Serious: Yes (Death)
  Sender: FDA-Public Use
  Company Number: AT-MERCK-0804AUT00005

PATIENT
  Sex: Male

DRUGS (1)
  1. COZAAR [Suspect]
     Indication: HYPERTENSION
     Route: 048

REACTIONS (1)
  - CEREBROVASCULAR ACCIDENT [None]
